FAERS Safety Report 5711363-9 (Version None)
Quarter: 2008Q2

REPORT INFORMATION
  Report Type: 
  Country: None (occurrence: None)
  Receive Date: 20080421
  Receipt Date: 20080414
  Transmission Date: 20081010
  Serious: Yes (Hospitalization)
  Sender: FDA-Public Use
  Company Number: B0517144A

PATIENT
  Age: 45 Year
  Sex: Female

DRUGS (2)
  1. HYCAMTIN [Suspect]
     Indication: OVARIAN CANCER
     Dosage: 3MGM2 PER DAY
     Route: 042
     Dates: start: 20070117, end: 20070621
  2. PACLITAXEL [Suspect]
     Indication: OVARIAN CANCER
     Dosage: 80MGM2 PER DAY
     Route: 042
     Dates: start: 20070117, end: 20070621

REACTIONS (2)
  - FEBRILE NEUTROPENIA [None]
  - PHARYNGITIS [None]
